FAERS Safety Report 7600564-0 (Version None)
Quarter: 2011Q3

REPORT INFORMATION
  Report Type: 
  Country: None (occurrence: None)
  Receive Date: 20110706
  Receipt Date: 20110706
  Transmission Date: 20111222
  Serious: Yes (Life-Threatening, Hospitalization)
  Sender: FDA-Public Use
  Company Number: None

PATIENT
  Sex: Female

DRUGS (1)
  1. LISINOPRIL [Suspect]
     Indication: HYPERTENSION
     Dosage: 10 MG 1 A DAY ORAL
     Route: 048
     Dates: start: 20110208, end: 20110517

REACTIONS (8)
  - OROPHARYNGEAL PAIN [None]
  - RASH [None]
  - DYSPNOEA [None]
  - OCULAR ICTERUS [None]
  - COUGH [None]
  - CHEST PAIN [None]
  - NAUSEA [None]
  - HEADACHE [None]
